FAERS Safety Report 5440496-X (Version None)
Quarter: 2007Q3

REPORT INFORMATION
  Report Type: 
  Country: None (occurrence: None)
  Receive Date: 20070831
  Receipt Date: 20070822
  Transmission Date: 20080115
  Serious: Yes (Other)
  Sender: FDA-Public Use
  Company Number: GB-AMGEN-US232921

PATIENT
  Sex: Male

DRUGS (7)
  1. ENBREL [Suspect]
     Indication: DRUG USE FOR UNKNOWN INDICATION
     Route: 058
     Dates: start: 20070530
  2. OLMESARTAN MEDOXOMIL [Concomitant]
     Route: 048
  3. FOLIC ACID [Concomitant]
     Dosage: 5 MG DAILY EXCEPT ON METHOTREXATE DAY
  4. ZANTAC 150 [Concomitant]
     Route: 048
  5. METHOTREXATE [Concomitant]
     Route: 048
  6. INDAPAMIDE [Concomitant]
     Indication: HYPERTENSION
     Route: 048
     Dates: start: 20050101
  7. NAPROXEN [Concomitant]
     Dosage: 1 - 2 TABLETS PRN
     Route: 048

REACTIONS (1)
  - BLINDNESS TRANSIENT [None]
